FAERS Safety Report 18351905 (Version 3)
Quarter: 2020Q4

REPORT INFORMATION
  Report Type: Spontaneous
  Country: US (occurrence: US)
  Receive Date: 20201007
  Receipt Date: 20201217
  Transmission Date: 20210114
  Serious: No
  Sender: FDA-Public Use
  Company Number: US-SA-2020SA275645

PATIENT

DRUGS (1)
  1. TOUJEO [Suspect]
     Active Substance: INSULIN GLARGINE
     Indication: TYPE 1 DIABETES MELLITUS
     Dosage: 30-40 UNITS DAILY
     Route: 065
     Dates: start: 2018

REACTIONS (3)
  - Device operational issue [Recovering/Resolving]
  - Blood glucose increased [Recovering/Resolving]
  - Product quality issue [Recovering/Resolving]
